FAERS Safety Report 4825505-0 (Version None)
Quarter: 2005Q4

REPORT INFORMATION
  Report Type: 
  Country: None (occurrence: None)
  Receive Date: 20051111
  Receipt Date: 20051102
  Transmission Date: 20060501
  Serious: Yes (Other)
  Sender: FDA-Public Use
  Company Number: JP-JNJFOC-20051101751

PATIENT
  Age: 4 Month
  Sex: Female
  Weight: 4 kg

DRUGS (1)
  1. TAVANIC [Suspect]
     Dates: start: 20041231, end: 20050105

REACTIONS (1)
  - VISUAL ACUITY REDUCED [None]
